FAERS Safety Report 21993070 (Version 4)
Quarter: 2023Q1

REPORT INFORMATION
  Report Type: Report from Study
  Country: US (occurrence: US)
  Receive Date: 20230215
  Receipt Date: 20230323
  Transmission Date: 20230418
  Serious: No
  Sender: FDA-Public Use
  Company Number: US-002147023-NVSC2023US032458

PATIENT
  Sex: Male

DRUGS (3)
  1. ENTRESTO [Suspect]
     Active Substance: SACUBITRIL\VALSARTAN
     Indication: Product used for unknown indication
     Dosage: 1 DOSAGE FORM, BID
     Route: 048
     Dates: start: 20230203
  2. ENTRESTO [Suspect]
     Active Substance: SACUBITRIL\VALSARTAN
     Dosage: 0.5 DOSAGE FORM, BID (1/2 TABLET TWICE DAILY AFTER 3 DAYS)
     Route: 048
  3. ENTRESTO [Suspect]
     Active Substance: SACUBITRIL\VALSARTAN
     Dosage: UNK
     Route: 065

REACTIONS (4)
  - Pruritus [Recovered/Resolved]
  - Hypotension [Unknown]
  - Prescribed underdose [Unknown]
  - Wrong technique in product usage process [Unknown]
